FAERS Safety Report 14363748 (Version 1)
Quarter: 2018Q1

REPORT INFORMATION
  Report Type: Report from Study
  Country: US (occurrence: US)
  Receive Date: 20180108
  Receipt Date: 20180108
  Transmission Date: 20180509
  Serious: Yes (Other)
  Sender: FDA-Public Use
  Company Number: US-ROCHE-2049192

PATIENT

DRUGS (51)
  1. GEMCITABINE [Suspect]
     Active Substance: GEMCITABINE\GEMCITABINE HYDROCHLORIDE
     Indication: NEOPLASM MALIGNANT
     Route: 065
  2. FLUDARABINE [Suspect]
     Active Substance: FLUDARABINE PHOSPHATE
     Indication: NEOPLASM MALIGNANT
     Route: 065
  3. CLADRIBINE. [Suspect]
     Active Substance: CLADRIBINE
     Indication: NEOPLASM MALIGNANT
     Route: 065
  4. BLEOMYCIN [Suspect]
     Active Substance: BLEOMYCIN SULFATE
     Indication: NEOPLASM MALIGNANT
     Route: 065
  5. TOPOTECAN [Suspect]
     Active Substance: TOPOTECAN HYDROCHLORIDE
     Indication: NEOPLASM MALIGNANT
     Route: 065
  6. VINBLASTINE [Suspect]
     Active Substance: VINBLASTINE
     Indication: NEOPLASM MALIGNANT
     Route: 065
  7. VINCRISTINE [Suspect]
     Active Substance: VINCRISTINE
     Indication: NEOPLASM MALIGNANT
     Route: 065
  8. IPILIMUMAB [Suspect]
     Active Substance: IPILIMUMAB
     Indication: NEOPLASM MALIGNANT
     Route: 065
  9. DABRAFENIB [Suspect]
     Active Substance: DABRAFENIB
     Indication: NEOPLASM MALIGNANT
     Route: 065
  10. OXALIPLATIN. [Suspect]
     Active Substance: OXALIPLATIN
     Indication: NEOPLASM MALIGNANT
     Route: 065
  11. DOXORUBICIN [Suspect]
     Active Substance: DOXORUBICIN
     Indication: NEOPLASM MALIGNANT
     Route: 065
  12. CARFILZOMIB [Suspect]
     Active Substance: CARFILZOMIB
     Indication: NEOPLASM MALIGNANT
     Route: 065
  13. CYCLOPHOSPHAMIDE. [Suspect]
     Active Substance: CYCLOPHOSPHAMIDE
     Indication: NEOPLASM MALIGNANT
     Route: 065
  14. DECITABINE. [Suspect]
     Active Substance: DECITABINE
     Indication: NEOPLASM MALIGNANT
     Route: 065
  15. MERCAPTOPURINE. [Suspect]
     Active Substance: MERCAPTOPURINE
     Indication: NEOPLASM MALIGNANT
     Route: 065
  16. RITUXIMAB. [Suspect]
     Active Substance: RITUXIMAB
     Indication: NEOPLASM MALIGNANT
     Route: 065
  17. BEVACIZUMAB. [Suspect]
     Active Substance: BEVACIZUMAB
     Indication: NEOPLASM MALIGNANT
     Route: 065
  18. CARBOPLATIN. [Suspect]
     Active Substance: CARBOPLATIN
     Indication: NEOPLASM MALIGNANT
     Route: 065
  19. ETOPOSIDE. [Suspect]
     Active Substance: ETOPOSIDE
     Indication: NEOPLASM MALIGNANT
     Route: 065
  20. CETUXIMAB. [Suspect]
     Active Substance: CETUXIMAB
     Indication: NEOPLASM MALIGNANT
     Route: 065
  21. THALIDOMIDE [Suspect]
     Active Substance: THALIDOMIDE
     Indication: NEOPLASM MALIGNANT
     Route: 065
  22. LENALIDOMIDE [Suspect]
     Active Substance: LENALIDOMIDE
     Indication: NEOPLASM MALIGNANT
     Route: 065
  23. TAMOXIFEN [Suspect]
     Active Substance: TAMOXIFEN
     Indication: NEOPLASM MALIGNANT
     Route: 065
  24. VISMODEGIB. [Suspect]
     Active Substance: VISMODEGIB
     Indication: NEOPLASM MALIGNANT
     Route: 065
  25. IFOSFAMIDE. [Suspect]
     Active Substance: IFOSFAMIDE
     Indication: NEOPLASM MALIGNANT
     Route: 065
  26. EPIRUBICIN [Suspect]
     Active Substance: EPIRUBICIN
     Indication: NEOPLASM MALIGNANT
     Route: 065
  27. REGORAFENIB [Suspect]
     Active Substance: REGORAFENIB
     Indication: NEOPLASM MALIGNANT
     Route: 065
  28. TRASTUZUMAB. [Suspect]
     Active Substance: TRASTUZUMAB
     Indication: NEOPLASM MALIGNANT
     Route: 065
  29. FLUOROURACIL. [Suspect]
     Active Substance: FLUOROURACIL
     Indication: NEOPLASM MALIGNANT
     Route: 065
  30. METHOTREXATE. [Suspect]
     Active Substance: METHOTREXATE
     Indication: NEOPLASM MALIGNANT
     Route: 065
  31. PEMETREXED. [Suspect]
     Active Substance: PEMETREXED
     Indication: NEOPLASM MALIGNANT
     Route: 065
  32. IDARUBICIN [Suspect]
     Active Substance: IDARUBICIN
     Indication: NEOPLASM MALIGNANT
     Route: 065
  33. PACLITAXEL. [Suspect]
     Active Substance: PACLITAXEL
     Indication: NEOPLASM MALIGNANT
     Route: 065
  34. DOCETAXEL. [Suspect]
     Active Substance: DOCETAXEL
     Indication: NEOPLASM MALIGNANT
     Route: 065
  35. DASATINIB. [Suspect]
     Active Substance: DASATINIB
     Indication: NEOPLASM MALIGNANT
     Route: 065
  36. OFATUMUMAB [Suspect]
     Active Substance: OFATUMUMAB
     Indication: NEOPLASM MALIGNANT
     Route: 065
  37. PAZOPANIB [Suspect]
     Active Substance: PAZOPANIB
     Indication: NEOPLASM MALIGNANT
     Route: 065
  38. TRAMETINIB [Suspect]
     Active Substance: TRAMETINIB
     Indication: NEOPLASM MALIGNANT
     Route: 065
  39. CAPECITABINE. [Suspect]
     Active Substance: CAPECITABINE
     Indication: NEOPLASM MALIGNANT
     Route: 065
  40. BENDAMUSTINE [Suspect]
     Active Substance: BENDAMUSTINE
     Indication: NEOPLASM MALIGNANT
     Route: 065
  41. MELPHALAN. [Suspect]
     Active Substance: MELPHALAN
     Indication: NEOPLASM MALIGNANT
     Route: 065
  42. DAUNORUBICIN [Suspect]
     Active Substance: DAUNORUBICIN
     Indication: NEOPLASM MALIGNANT
     Route: 065
  43. IRINOTECAN [Suspect]
     Active Substance: IRINOTECAN
     Indication: NEOPLASM MALIGNANT
     Route: 065
  44. RUXOLITINIB [Suspect]
     Active Substance: RUXOLITINIB
     Indication: NEOPLASM MALIGNANT
     Route: 065
  45. BORTEZOMIB [Suspect]
     Active Substance: BORTEZOMIB
     Indication: NEOPLASM MALIGNANT
     Route: 065
  46. ALEMTUZUMAB [Suspect]
     Active Substance: ALEMTUZUMAB
     Indication: NEOPLASM MALIGNANT
     Route: 065
  47. BUSULFAN. [Suspect]
     Active Substance: BUSULFAN
     Indication: NEOPLASM MALIGNANT
     Route: 065
  48. CISPLATIN. [Suspect]
     Active Substance: CISPLATIN
     Indication: NEOPLASM MALIGNANT
     Route: 065
  49. CYTARABINE. [Suspect]
     Active Substance: CYTARABINE
     Indication: NEOPLASM MALIGNANT
     Route: 065
  50. CLOFARABINE. [Suspect]
     Active Substance: CLOFARABINE
     Indication: NEOPLASM MALIGNANT
     Route: 065
  51. POMALIDOMIDE [Suspect]
     Active Substance: POMALIDOMIDE
     Indication: NEOPLASM MALIGNANT
     Route: 065

REACTIONS (3)
  - Hepatic failure [Unknown]
  - Hepatitis [Unknown]
  - Lymphopenia [Unknown]
